FAERS Safety Report 4763762-X (Version None)
Quarter: 2005Q3

REPORT INFORMATION
  Report Type: 
  Country: None (occurrence: None)
  Receive Date: 20050908
  Receipt Date: 20050824
  Transmission Date: 20060218
  Serious: Yes (Hospitalization, Other)
  Sender: FDA-Public Use
  Company Number: PHEH2005US09455

PATIENT
  Age: 31 Year
  Sex: Female

DRUGS (3)
  1. TEGRETOL-XR [Suspect]
     Indication: CONVULSION
     Dosage: UNK, UNK
     Route: 048
     Dates: start: 20041101, end: 20050801
  2. SEROQUEL [Concomitant]
  3. TEGRETOL [Suspect]
     Indication: CONVULSION
     Dosage: 200 MG, BID
     Route: 048
     Dates: start: 20050801

REACTIONS (8)
  - AGITATION [None]
  - ASTHENIA [None]
  - BLOOD GLUCOSE DECREASED [None]
  - DEPRESSED MOOD [None]
  - DRUG INEFFECTIVE [None]
  - EATING DISORDER [None]
  - MANIA [None]
  - ORAL INTAKE REDUCED [None]
